FAERS Safety Report 4285481-9 (Version None)
Quarter: 2004Q1

REPORT INFORMATION
  Report Type: 
  Country: None (occurrence: None)
  Receive Date: 20040202
  Receipt Date: 20040127
  Transmission Date: 20041129
  Serious: Yes (Death, Hospitalization)
  Sender: FDA-Public Use
  Company Number: US019812

PATIENT
  Age: 77 Year
  Sex: Male

DRUGS (10)
  1. EPOGEN [Suspect]
     Indication: DIALYSIS
     Dosage: 20000 U, 3 TIMES/WK, IV
     Route: 042
     Dates: start: 19990101, end: 20020923
  2. NEPHRO-VITE [Concomitant]
  3. CANDESARTAN CILEXETIL [Concomitant]
  4. TESTOSTERONE CIPIONATE [Concomitant]
  5. SIMVASTATIN [Concomitant]
  6. FUROSEMIDE [Concomitant]
  7. LANSOPRAZOLE [Concomitant]
  8. PHOSLO [Concomitant]
  9. ACETYLSALICYLIC ACID SRT [Concomitant]
  10. PARICALCITOL [Concomitant]

REACTIONS (17)
  - ANTI-ERYTHROPOIETIN ANTIBODY POSITIVE [None]
  - APLASIA PURE RED CELL [None]
  - BLOOD IRON INCREASED [None]
  - BLOOD PARATHYROID HORMONE INCREASED [None]
  - ELECTROPHORESIS PROTEIN ABNORMAL [None]
  - EMBOLISM [None]
  - GASTROINTESTINAL DISORDER [None]
  - HAEMOGLOBIN DECREASED [None]
  - HAEMOGLOBINOPATHY [None]
  - INTESTINAL INFARCTION [None]
  - MARROW HYPERPLASIA [None]
  - PLASMACYTOSIS [None]
  - PLATELET COUNT DECREASED [None]
  - RETICULOCYTE PERCENTAGE DECREASED [None]
  - SPLEEN DISORDER [None]
  - THERAPEUTIC RESPONSE DECREASED [None]
  - WHITE BLOOD CELL COUNT DECREASED [None]
